FAERS Safety Report 4735746-9 (Version None)
Quarter: 2005Q3

REPORT INFORMATION
  Report Type: 
  Country: None (occurrence: None)
  Receive Date: 20050801
  Receipt Date: 20050801
  Transmission Date: 20060218
  Serious: Yes (Life-Threatening, Hospitalization)
  Sender: FDA-Public Use
  Company Number: None

PATIENT
  Age: 77 Year
  Sex: Male
  Weight: 77 kg

DRUGS (3)
  1. BEVACIZUMAB [Suspect]
     Indication: COLON CANCER
     Dosage: 5 MG/KG IV Q 2 WEEKS
     Route: 042
     Dates: start: 20050218, end: 20050317
  2. CAPECITABINE [Suspect]
     Indication: COLON CANCER
     Dosage: 1 GM/M2 PO BID 2 WEEKS ON 1 WEEK OFF
     Route: 048
  3. IRINOTECAN HCL [Suspect]
     Indication: COLON CANCER
     Dosage: 250 MG/M2 Q 3 W

REACTIONS (2)
  - PAIN IN EXTREMITY [None]
  - PULMONARY EMBOLISM [None]
